FAERS Safety Report 4534170-1 (Version None)
Quarter: 2004Q4

REPORT INFORMATION
  Report Type: 
  Country: None (occurrence: None)
  Receive Date: 20041214
  Receipt Date: 20040901
  Transmission Date: 20050328
  Serious: No
  Sender: FDA-Public Use
  Company Number: 2004233399US

PATIENT
  Age: 87 Year
  Sex: Female
  Weight: 93 kg

DRUGS (7)
  1. BEXTRA [Suspect]
     Indication: ARTHRITIS
     Dosage: TID, ORAL
     Route: 048
     Dates: start: 20040804, end: 20040801
  2. OTHER ANTIHYPERTENSIVES() [Suspect]
     Indication: HYPERTENSION
  3. FUROSEMIDE [Concomitant]
  4. METOLAZONE [Concomitant]
  5. LOTENSIN [Concomitant]
  6. KLOR-CON [Concomitant]
  7. ZOCOR [Concomitant]

REACTIONS (3)
  - DRUG INTERACTION [None]
  - MEDICATION ERROR [None]
  - OEDEMA PERIPHERAL [None]
